FAERS Safety Report 5809143-9 (Version None)
Quarter: 2008Q3

REPORT INFORMATION
  Report Type: 
  Country: None (occurrence: None)
  Receive Date: 20080714
  Receipt Date: 20080702
  Transmission Date: 20090109
  Serious: Yes (Hospitalization)
  Sender: FDA-Public Use
  Company Number: US-PFIZER INC-2008036463

PATIENT
  Sex: Male

DRUGS (14)
  1. SUTENT [Suspect]
     Indication: PANCREATIC CARCINOMA
     Route: 048
  2. GEMCITABINE [Suspect]
     Indication: PANCREATIC CARCINOMA
     Route: 042
  3. AVAPRO [Concomitant]
     Indication: HYPERTENSION
     Route: 048
  4. MIRALAX [Concomitant]
     Indication: CONSTIPATION
     Route: 048
  5. OXYCODONE HCL [Concomitant]
     Indication: ABDOMINAL PAIN
     Route: 048
  6. OXYCONTIN [Concomitant]
     Indication: ABDOMINAL PAIN
     Route: 048
  7. REGLAN [Concomitant]
     Indication: HICCUPS
     Route: 048
  8. RITALIN [Concomitant]
     Indication: ANOREXIA
     Route: 048
  9. TOPROL-XL [Concomitant]
     Indication: HYPERTENSION
     Route: 048
  10. TYLENOL EXTRA-STRENGTH [Concomitant]
     Indication: ABDOMINAL PAIN
     Route: 048
  11. ZOFRAN [Concomitant]
     Indication: PROPHYLAXIS OF NAUSEA AND VOMITING
     Route: 048
  12. DEXAMETHASONE [Concomitant]
     Indication: PROPHYLAXIS
     Route: 048
     Dates: start: 20080421, end: 20080421
  13. AFRIN [Concomitant]
     Indication: EPISTAXIS
     Route: 045
     Dates: start: 20080427, end: 20080427
  14. LANTUS [Concomitant]
     Indication: DIABETES MELLITUS
     Dosage: TEXT:25 UNITS
     Route: 058

REACTIONS (1)
  - CEREBROVASCULAR ACCIDENT [None]
